FAERS Safety Report 8557912 (Version 2)
Quarter: 2012Q4

REPORT INFORMATION
  Report Type: 
  Country: US (occurrence: US)
  Receive Date: 20120511
  Receipt Date: 20121015
  Transmission Date: 20130627
  Serious: Yes (Hospitalization)
  Sender: FDA-Public Use
  Company Number: US-BAYER-2012-045718

PATIENT
  Age: 23 Year
  Sex: Female

DRUGS (3)
  1. YASMIN [Suspect]
  2. BEYAZ [Suspect]
  3. TRAMADOL [Concomitant]
     Dosage: 50 mg, UNK

REACTIONS (8)
  - Pulmonary embolism [None]
  - Pain [None]
  - Anxiety [None]
  - Anhedonia [None]
  - Fear [None]
  - Injury [None]
  - Emotional distress [None]
  - Quality of life decreased [None]
